FAERS Safety Report 9802461 (Version 1)
Quarter: 2014Q1

REPORT INFORMATION
  Report Type: Spontaneous
  Country: GB (occurrence: GB)
  Receive Date: 20140107
  Receipt Date: 20140107
  Transmission Date: 20141002
  Serious: Yes (Other)
  Sender: FDA-Public Use
  Company Number: PHHY2014GB000456

PATIENT
  Age: 38 Year
  Sex: Male
  Weight: 108.1 kg

DRUGS (3)
  1. ATORVASTATIN [Suspect]
     Dates: start: 20131105, end: 20131219
  2. LEVOTHYROXINE [Concomitant]
     Dates: start: 20130906, end: 20131022
  3. LEVOTHYROXINE [Concomitant]
     Dates: start: 20131029, end: 20131126

REACTIONS (1)
  - Non-cardiac chest pain [Recovered/Resolved]
